FAERS Safety Report 23292217 (Version 1)
Quarter: 2023Q4

REPORT INFORMATION
  Report Type: Spontaneous
  Country: FR (occurrence: FR)
  Receive Date: 20231213
  Receipt Date: 20231213
  Transmission Date: 20240109
  Serious: Yes (Hospitalization, Other)
  Sender: FDA-Public Use
  Company Number: FR-CELLTRION INC.-2023FR023449

PATIENT

DRUGS (30)
  1. RITUXIMAB [Suspect]
     Active Substance: RITUXIMAB
     Indication: Non-Hodgkin^s lymphoma
     Dosage: 1 DOSAGE FORM (TOTAL)
     Route: 065
     Dates: start: 20220504, end: 20220509
  2. VINCRISTINE SULFATE [Suspect]
     Active Substance: VINCRISTINE SULFATE
     Indication: Non-Hodgkin^s lymphoma
     Dosage: 1 DOSAGE FORM (TOTAL)
     Route: 065
     Dates: start: 20220504, end: 20220509
  3. METHOTREXATE [Suspect]
     Active Substance: METHOTREXATE
     Indication: Non-Hodgkin^s lymphoma
     Dosage: 1 DOSAGE FORM (TOTAL)
     Route: 065
     Dates: start: 20220504, end: 20220509
  4. BACTRIM [Suspect]
     Active Substance: SULFAMETHOXAZOLE\TRIMETHOPRIM
     Indication: Product used for unknown indication
     Dosage: 1 DOSAGE FORM
     Route: 065
  5. CYCLOPHOSPHAMIDE [Suspect]
     Active Substance: CYCLOPHOSPHAMIDE
     Indication: Non-Hodgkin^s lymphoma
     Dosage: 1 DOSAGE FORM (TOTAL)
     Route: 065
     Dates: start: 20220504, end: 20220509
  6. DOXORUBICIN HYDROCHLORIDE [Suspect]
     Active Substance: DOXORUBICIN HYDROCHLORIDE
     Indication: Non-Hodgkin^s lymphoma
     Dosage: 1 DOSAGE FORM (TOTAL)
     Route: 065
     Dates: start: 20220504, end: 20220509
  7. DOXORUBICIN HYDROCHLORIDE [Suspect]
     Active Substance: DOXORUBICIN HYDROCHLORIDE
     Dosage: UNK UNK, QD
     Route: 065
     Dates: start: 20220708, end: 20220708
  8. ARANESP [Concomitant]
     Active Substance: DARBEPOETIN ALFA
     Indication: Product used for unknown indication
     Dosage: 1 DOSAGE FORM
     Route: 065
  9. LETROZOLE [Concomitant]
     Active Substance: LETROZOLE
     Indication: Product used for unknown indication
     Dosage: 2.5 MG, QD (1-0-0)
     Route: 065
  10. TIMOLOL MALEATE\TRAVOPROST [Concomitant]
     Active Substance: TIMOLOL MALEATE\TRAVOPROST
     Indication: Product used for unknown indication
     Dosage: UNK (40 MICROGRAMMES/ML + 5 MG/ML)
     Route: 065
  11. REFRESH CELLUVISC [Concomitant]
     Active Substance: CARBOXYMETHYLCELLULOSE SODIUM
     Indication: Product used for unknown indication
     Dosage: UNK (FORMULATION: RECIPIENT UNIDOSE)
     Route: 065
  12. MYFORTIC [Concomitant]
     Active Substance: MYCOPHENOLATE SODIUM
     Indication: Product used for unknown indication
     Dosage: UNK (FORMULATION: GASTRO-RESISTANT)
     Route: 065
  13. FILGRASTIM [Concomitant]
     Active Substance: FILGRASTIM
     Indication: Product used for unknown indication
     Dosage: UNK (STRENGTH: 30 MU/0.5 ML)
     Route: 065
  14. SODIUM CITRATE\SODIUM LAURYL SULFOACETATE\SORBITOL [Concomitant]
     Active Substance: SODIUM CITRATE\SODIUM LAURYL SULFOACETATE\SORBITOL
     Indication: Product used for unknown indication
     Dosage: UNK
     Route: 065
  15. LORAZEPAM [Concomitant]
     Active Substance: LORAZEPAM
     Indication: Product used for unknown indication
     Dosage: UNK
     Route: 065
  16. TITANOREINE [CHONDRUS CRISPUS;TITANIUM DIOXIDE;ZINC OXIDE] [Concomitant]
     Indication: Product used for unknown indication
     Dosage: 2 DOSAGE FORM, BID (1-0-1)
     Route: 065
  17. VALACYCLOVIR HYDROCHLORIDE [Concomitant]
     Active Substance: VALACYCLOVIR HYDROCHLORIDE
     Indication: Product used for unknown indication
     Dosage: 1000 MG, BID (1-0-1)
     Route: 065
  18. CHOLECALCIFEROL [Concomitant]
     Active Substance: CHOLECALCIFEROL
     Indication: Product used for unknown indication
     Dosage: UNK (FORMULATION: SOLUTION AMPOULE)
     Route: 065
  19. ACETAMINOPHEN [Concomitant]
     Active Substance: ACETAMINOPHEN
     Indication: Pain
     Dosage: UNK (1 G)
     Route: 065
  20. POLYETHYLENE GLYCOLS [Concomitant]
     Active Substance: POLYETHYLENE GLYCOLS
     Indication: Constipation
     Dosage: UNK
     Route: 065
  21. PRIMPERAN [Concomitant]
     Active Substance: METOCLOPRAMIDE HYDROCHLORIDE
     Indication: Nausea
     Dosage: 10 MG (1 CP MAXIMUM)
     Route: 065
  22. SPAGULAX [Concomitant]
     Active Substance: HERBALS\PLANTAGO OVATA SEED
     Indication: Product used for unknown indication
     Dosage: 3 DOSAGE FORM, QD
     Route: 065
  23. DOSTINEX [Concomitant]
     Active Substance: CABERGOLINE
     Indication: Product used for unknown indication
     Dosage: UNK
     Route: 065
  24. FUNGIZONE [Concomitant]
     Active Substance: AMPHOTERICIN B
     Indication: Product used for unknown indication
     Dosage: UNK
     Route: 065
  25. ESOMEPRAZOLE [Concomitant]
     Active Substance: ESOMEPRAZOLE
     Indication: Product used for unknown indication
     Dosage: 2 DOSAGE FORM, QD
     Route: 065
  26. PHLOROGLUCINOL\1,3,5-TRIMETHOXYBENZENE [Concomitant]
     Active Substance: PHLOROGLUCINOL\1,3,5-TRIMETHOXYBENZENE
     Indication: Product used for unknown indication
     Dosage: UNK
     Route: 065
  27. PANTOPRAZOLE [Concomitant]
     Active Substance: PANTOPRAZOLE
     Indication: Product used for unknown indication
     Dosage: 80 MG, BID (1-0-1)
     Route: 065
  28. FEMARA [Concomitant]
     Active Substance: LETROZOLE
     Indication: Product used for unknown indication
     Dosage: UNK
     Route: 065
  29. VALACYCLOVIR HYDROCHLORIDE [Concomitant]
     Active Substance: VALACYCLOVIR HYDROCHLORIDE
     Indication: Product used for unknown indication
     Dosage: 2 DOSAGE FORM, QD
     Route: 065
  30. CALCIUM ALGINATE [Concomitant]
     Active Substance: CALCIUM ALGINATE
     Indication: Product used for unknown indication
     Dosage: 3 DOSAGE FORM
     Route: 065

REACTIONS (5)
  - Febrile bone marrow aplasia [Recovered/Resolved]
  - Mucosal inflammation [Recovered/Resolved]
  - Clostridium difficile colitis [Recovered/Resolved]
  - Acute kidney injury [Recovered/Resolved]
  - Vomiting [Recovered/Resolved]

NARRATIVE: CASE EVENT DATE: 20220509
